FAERS Safety Report 19239683 (Version 1)
Quarter: 2021Q2

REPORT INFORMATION
  Report Type: Spontaneous
  Country: US (occurrence: US)
  Receive Date: 20210510
  Receipt Date: 20210510
  Transmission Date: 20210717
  Serious: Yes (Other)
  Sender: FDA-Public Use
  Company Number: NVSC2021US101571

PATIENT
  Age: 51 Year
  Sex: Female

DRUGS (4)
  1. BRIGATINIB [Suspect]
     Active Substance: BRIGATINIB
     Indication: METASTASES TO CENTRAL NERVOUS SYSTEM
     Dosage: UNK
     Route: 065
  2. CARBOPLATIN. [Suspect]
     Active Substance: CARBOPLATIN
     Indication: METASTASES TO CENTRAL NERVOUS SYSTEM
     Dosage: 4 CYCLES
     Route: 065
  3. PEMETREXED. [Suspect]
     Active Substance: PEMETREXED
     Indication: METASTASES TO CENTRAL NERVOUS SYSTEM
     Dosage: 4 CYCLES
     Route: 065
  4. BRIGATINIB [Suspect]
     Active Substance: BRIGATINIB
     Indication: LUNG ADENOCARCINOMA
     Dosage: 4 CYCLES
     Route: 065

REACTIONS (3)
  - Product use in unapproved indication [Unknown]
  - Metastases to central nervous system [Unknown]
  - Malignant neoplasm progression [Unknown]
